FAERS Safety Report 20964255 (Version 3)
Quarter: 2023Q1

REPORT INFORMATION
  Report Type: Spontaneous
  Country: US (occurrence: US)
  Receive Date: 20220615
  Receipt Date: 20230103
  Transmission Date: 20230418
  Serious: No
  Sender: FDA-Public Use
  Company Number: US-Vifor (International) Inc.-VIT-2022-03857

PATIENT
  Age: 59 Year
  Sex: Male

DRUGS (3)
  1. VELTASSA [Suspect]
     Active Substance: PATIROMER
     Indication: Hyperkalaemia
     Route: 048
     Dates: start: 20220428
  2. VELTASSA [Suspect]
     Active Substance: PATIROMER
     Dosage: TAKE 1/2 PACKET FOR A WEEK
     Dates: start: 2022
  3. VELTASSA [Suspect]
     Active Substance: PATIROMER
     Dosage: NORMAL DIRECTIONS OF 1 PACKET PER DAY

REACTIONS (2)
  - Muscle spasms [Not Recovered/Not Resolved]
  - Abdominal pain upper [Unknown]

NARRATIVE: CASE EVENT DATE: 20220101
